FAERS Safety Report 4634337-8 (Version None)
Quarter: 2005Q2

REPORT INFORMATION
  Report Type: 
  Country: None (occurrence: None)
  Receive Date: 20050413
  Receipt Date: 20020322
  Transmission Date: 20051028
  Serious: Yes (Disabling)
  Sender: FDA-Public Use
  Company Number: 3479

PATIENT
  Age: 31 Year
  Sex: Female

DRUGS (7)
  1. VINCRISTINE [Suspect]
     Indication: HODGKIN'S DISEASE
     Dosage: 2 MG PER_CYCLE
  2. CYCLOPHOSPHAMIDE [Concomitant]
  3. DOXORUBICIN HYDROCHLORIDE [Concomitant]
  4. ETOPOSIDE [Concomitant]
  5. PROCARBAZINE [Concomitant]
  6. PREDNISOLONE [Concomitant]
  7. BLEOMYCIN [Concomitant]

REACTIONS (8)
  - AREFLEXIA [None]
  - CHROMOSOME ABNORMALITY [None]
  - DEMYELINATION [None]
  - MUSCULAR WEAKNESS [None]
  - NEUROTOXICITY [None]
  - PARESIS [None]
  - PERIPHERAL MOTOR NEUROPATHY [None]
  - PERONEAL NERVE PALSY [None]
